FAERS Safety Report 25340146 (Version 1)
Quarter: 2025Q2

REPORT INFORMATION
  Report Type: Spontaneous
  Country: JP (occurrence: JP)
  Receive Date: 20250521
  Receipt Date: 20250521
  Transmission Date: 20250716
  Serious: Yes (Hospitalization)
  Sender: NOVO NORDISK
  Company Number: JP-NOVOPROD-1408014

PATIENT
  Age: 89 Year
  Sex: Female
  Weight: 40 kg

DRUGS (2)
  1. INSULIN ICODEC [Suspect]
     Active Substance: INSULIN ICODEC
     Indication: Type 2 diabetes mellitus
     Route: 058
  2. TRESIBA [Suspect]
     Active Substance: INSULIN DEGLUDEC
     Indication: Type 2 diabetes mellitus
     Dosage: 6 IU, QD
     Route: 058

REACTIONS (3)
  - Fall [Unknown]
  - Hypoglycaemia [Recovering/Resolving]
  - Wrong product administered [Unknown]
